FAERS Safety Report 4377754-6 (Version None)
Quarter: 2004Q2

REPORT INFORMATION
  Report Type: 
  Country: None (occurrence: None)
  Receive Date: 20040615
  Receipt Date: 20040413
  Transmission Date: 20050107
  Serious: Yes (Hospitalization)
  Sender: FDA-Public Use
  Company Number: DE-MERCK-0404DEU00102

PATIENT
  Age: 80 Year
  Sex: Female

DRUGS (12)
  1. FOSAMAX [Suspect]
     Indication: OSTEOPOROSIS POSTMENOPAUSAL
     Route: 048
     Dates: start: 19970101, end: 19980101
  2. FOSAMAX [Suspect]
     Route: 048
     Dates: start: 20031201, end: 20040201
  3. FOSAMAX [Suspect]
     Route: 048
     Dates: end: 19990101
  4. FOSAMAX [Suspect]
     Route: 048
     Dates: end: 20010101
  5. FOSAMAX [Suspect]
     Route: 048
     Dates: end: 20030101
  6. FOSAMAX [Suspect]
     Indication: SPINAL FRACTURE
     Route: 048
     Dates: start: 19970101, end: 19980101
  7. FOSAMAX [Suspect]
     Route: 048
     Dates: start: 20031201, end: 20040201
  8. FOSAMAX [Suspect]
     Route: 048
     Dates: end: 19990101
  9. FOSAMAX [Suspect]
     Route: 048
     Dates: end: 20010101
  10. FOSAMAX [Suspect]
     Route: 048
     Dates: end: 20030101
  11. CALCIUM CARBONATE AND CHOLECALCIFEROL [Concomitant]
     Route: 065
  12. LEVOTHYROXINE SODIUM [Concomitant]
     Route: 065

REACTIONS (1)
  - IRON DEFICIENCY ANAEMIA [None]
